FAERS Safety Report 4339756-5 (Version None)
Quarter: 2004Q2

REPORT INFORMATION
  Report Type: 
  Country: None (occurrence: None)
  Receive Date: 20040415
  Receipt Date: 20040415
  Transmission Date: 20050107
  Serious: Yes (Life-Threatening, Hospitalization)
  Sender: FDA-Public Use
  Company Number: None

PATIENT
  Age: 77 Year
  Sex: Female

DRUGS (3)
  1. LEVAQUIN [Suspect]
     Indication: SEPSIS
     Dosage: 500 MG Q 24 H IV
     Route: 042
     Dates: start: 20040411, end: 20040412
  2. LEVAQUIN [Suspect]
     Indication: URINARY TRACT INFECTION
     Dosage: 500 MG Q 24 H IV
     Route: 042
     Dates: start: 20040411, end: 20040412
  3. AMIODARONE 150 MG/3 ML NOVAPLUS [Suspect]
     Indication: VENTRICULAR TACHYCARDIA
     Dosage: 900 MG OVER 24 HO IV
     Route: 042
     Dates: start: 20040411, end: 20040412

REACTIONS (2)
  - TORSADE DE POINTES [None]
  - VENTRICULAR TACHYCARDIA [None]
